FAERS Safety Report 25599912 (Version 3)
Quarter: 2025Q3

REPORT INFORMATION
  Report Type: Spontaneous
  Country: JP (occurrence: JP)
  Receive Date: 20250724
  Receipt Date: 20250813
  Transmission Date: 20251020
  Serious: Yes (Hospitalization)
  Sender: BOEHRINGER INGELHEIM
  Company Number: JP-NBI-2025-BI-084685

PATIENT
  Age: 80 Year
  Sex: Male
  Weight: 62 kg

DRUGS (10)
  1. OFEV [Suspect]
     Active Substance: NINTEDANIB
     Indication: Idiopathic interstitial pneumonia
     Dates: end: 20240919
  2. OFEV [Suspect]
     Active Substance: NINTEDANIB
  3. SULFAMETHOXAZOLE\TRIMETHOPRIM [Concomitant]
     Active Substance: SULFAMETHOXAZOLE\TRIMETHOPRIM
  4. PREDNISOLONE [Concomitant]
     Active Substance: PREDNISOLONE
  5. LANSOPRAZOLE [Concomitant]
     Active Substance: LANSOPRAZOLE
  6. LINAGLIPTIN [Concomitant]
     Active Substance: LINAGLIPTIN
  7. RISEDRONATE SODIUM [Concomitant]
     Active Substance: RISEDRONATE SODIUM
  8. AMLODIPINE [Concomitant]
     Active Substance: AMLODIPINE BESYLATE
  9. ROSUVASTATIN [Concomitant]
     Active Substance: ROSUVASTATIN
  10. SILODOSIN [Concomitant]
     Active Substance: SILODOSIN

REACTIONS (1)
  - Intestinal ischaemia [Recovering/Resolving]

NARRATIVE: CASE EVENT DATE: 20240919
